FAERS Safety Report 20984526 (Version 1)
Quarter: 2022Q2

REPORT INFORMATION
  Report Type: Spontaneous
  Country: CH (occurrence: CH)
  Receive Date: 20220621
  Receipt Date: 20220621
  Transmission Date: 20220720
  Serious: Yes (Other)
  Sender: FDA-Public Use
  Company Number: CH-CELLTRION INC.-2022CH009655

PATIENT

DRUGS (2)
  1. INFLECTRA [Suspect]
     Active Substance: INFLIXIMAB-DYYB
     Indication: Colitis ulcerative
     Dosage: UNK
  2. GOLIMUMAB [Concomitant]
     Active Substance: GOLIMUMAB
     Dosage: 200 MG SUBCUTANEOUSLY, THEN 100 MG AT 2 WEEKS, THEN 50 MG TO 100 MG EVERY 4 WEEKS
     Route: 058

REACTIONS (8)
  - Abscess [Recovering/Resolving]
  - Subcutaneous abscess [Recovering/Resolving]
  - Cellulitis [Recovering/Resolving]
  - Panniculitis [Recovering/Resolving]
  - Gastrointestinal haemorrhage [Recovering/Resolving]
  - Shock [Recovering/Resolving]
  - Drug ineffective [Unknown]
  - Drug specific antibody present [Unknown]
